FAERS Safety Report 23783078 (Version 1)
Quarter: 2024Q2

REPORT INFORMATION
  Report Type: Spontaneous
  Country: CN (occurrence: CN)
  Receive Date: 20240425
  Receipt Date: 20240425
  Transmission Date: 20240716
  Serious: Yes (Other)
  Sender: FDA-Public Use
  Company Number: CN-BAYER-2024A061539

PATIENT
  Age: 37 Year
  Sex: Female
  Weight: 71 kg

DRUGS (3)
  1. DIENOGEST [Suspect]
     Active Substance: DIENOGEST
     Indication: Endometriosis
     Dosage: 1 DF, QD
     Route: 048
     Dates: start: 20240324, end: 20240331
  2. DIENOGEST [Suspect]
     Active Substance: DIENOGEST
     Indication: Endometriosis
     Dosage: 1 DF, QD
     Route: 048
     Dates: start: 202404, end: 202404
  3. YASMIN [Suspect]
     Active Substance: DROSPIRENONE\ETHINYL ESTRADIOL
     Indication: Endometriosis
     Dosage: UNK
     Route: 048
     Dates: start: 202404

REACTIONS (4)
  - Insomnia [Recovering/Resolving]
  - Vaginal infection [None]
  - Vulvovaginal pruritus [None]
  - Off label use [None]

NARRATIVE: CASE EVENT DATE: 20240101
